FAERS Safety Report 9703257 (Version 1)
Quarter: 2013Q4

REPORT INFORMATION
  Report Type: Report from Study
  Country: US (occurrence: US)
  Receive Date: 20131122
  Receipt Date: 20131122
  Transmission Date: 20140711
  Serious: Yes (Life-Threatening, Hospitalization)
  Sender: FDA-Public Use
  Company Number: GXBR2013US002022

PATIENT
  Sex: Male

DRUGS (2)
  1. ENOXAPARIN SODIUM [Suspect]
     Dosage: 100 MG, QD
     Route: 058
     Dates: end: 201310
  2. CHEMOTHERAPEUTICS NOS [Concomitant]
     Dosage: UNK DF, UNK

REACTIONS (3)
  - Haemorrhage [Unknown]
  - Apparent death [Unknown]
  - Weight decreased [Unknown]
